FAERS Safety Report 18195807 (Version 5)
Quarter: 2020Q4

REPORT INFORMATION
  Report Type: Report from Study
  Country: JP (occurrence: JP)
  Receive Date: 20200826
  Receipt Date: 20201228
  Transmission Date: 20210113
  Serious: Yes (Other)
  Sender: FDA-Public Use
  Company Number: JP-CELLTRION INC.-2020JP025652

PATIENT

DRUGS (17)
  1. CT-P6 [Suspect]
     Active Substance: INVESTIGATIONAL BIOSIMILARS
     Indication: HER2 POSITIVE GASTRIC CANCER
     Dosage: 420 MILLIGRAM, QD (EVERY ADMINISTRATION)
     Route: 041
     Dates: start: 20200428, end: 20200428
  2. MOSAPRIDE CITRATE HYDRATE [Concomitant]
     Active Substance: MOSAPRIDE CITRATE DIHYDRATE
     Indication: GASTROOESOPHAGEAL REFLUX DISEASE
     Dosage: UNK
  3. CT-P6 [Suspect]
     Active Substance: INVESTIGATIONAL BIOSIMILARS
     Dosage: 300 MILLIGRAM, QD (EVERY ADMINISTRATION)
     Route: 041
     Dates: start: 20200630, end: 20200630
  4. CAPECITABINE. [Suspect]
     Active Substance: CAPECITABINE
     Indication: HER2 POSITIVE GASTRIC CANCER
     Dosage: 2400 MILLIGRAM, QD (EVERY ADMINISTRATION)
     Route: 048
     Dates: start: 20200428, end: 20200513
  5. CAPECITABINE. [Suspect]
     Active Substance: CAPECITABINE
     Dosage: 2400 MILLIGRAM, QD (EVERY ADMINISTRATION)
     Route: 048
     Dates: start: 20200519, end: 20200603
  6. CAPECITABINE. [Suspect]
     Active Substance: CAPECITABINE
     Dosage: 2100 MILLIGRAM, QD (EVERY ADMINISTRATION)
     Route: 048
     Dates: start: 20200630, end: 20200715
  7. OXALIPLATIN. [Concomitant]
     Active Substance: OXALIPLATIN
     Indication: HER2 POSITIVE GASTRIC CANCER
     Dosage: UNK
     Dates: start: 20200428, end: 20200721
  8. MAGNESIUM OXIDE. [Concomitant]
     Active Substance: MAGNESIUM OXIDE
     Indication: CONSTIPATION
     Dosage: UNK
  9. ALUMINUM [ALUMINIUM HYDROXIDE;MAGNESIUM HYDROXIDE] [Concomitant]
     Indication: GASTROOESOPHAGEAL REFLUX DISEASE
     Dosage: UNK
  10. CT-P6 [Suspect]
     Active Substance: INVESTIGATIONAL BIOSIMILARS
     Dosage: 300 MILLIGRAM, QD (EVERY ADMINISTRATION)
     Route: 041
     Dates: start: 20200721, end: 20200721
  11. CT-P6 [Suspect]
     Active Substance: INVESTIGATIONAL BIOSIMILARS
     Dosage: 300 MILLIGRAM, QD (EVERY ADMINISTRATION)
     Route: 041
     Dates: start: 20200609, end: 20200609
  12. CAPECITABINE. [Suspect]
     Active Substance: CAPECITABINE
     Dosage: 2100 MILLIGRAM, QD (EVERY ADMINISTRATION)
     Route: 048
     Dates: start: 20200721, end: 20200805
  13. CAPECITABINE. [Suspect]
     Active Substance: CAPECITABINE
     Dosage: 2400 MILLIGRAM, QD (EVERY ADMINISTRATION)
     Route: 048
     Dates: start: 20200609, end: 20200624
  14. SENNOSIDE [Concomitant]
     Active Substance: SENNOSIDES
     Indication: CONSTIPATION
     Dosage: UNK
  15. HACHIAZULE [SODIUM GUALENATE] [Concomitant]
     Indication: TASTE DISORDER
     Dosage: UNK
     Dates: start: 20200428
  16. CT-P6 [Suspect]
     Active Substance: INVESTIGATIONAL BIOSIMILARS
     Dosage: 315 MILLIGRAM, QD (EVERY ADMINISTRATION)
     Route: 041
     Dates: start: 20200519, end: 20200519
  17. BENIDIPINE HYDROCHLORIDE [Concomitant]
     Active Substance: BENIDIPINE HYDROCHLORIDE
     Indication: HYPERTENSION
     Dosage: UNK

REACTIONS (10)
  - Malaise [Not Recovered/Not Resolved]
  - Lacrimation increased [Not Recovered/Not Resolved]
  - Nausea [Not Recovered/Not Resolved]
  - Constipation [Recovered/Resolved]
  - Taste disorder [Not Recovered/Not Resolved]
  - Decreased appetite [Not Recovered/Not Resolved]
  - Neuropathy peripheral [Not Recovered/Not Resolved]
  - Stomatitis [Not Recovered/Not Resolved]
  - Palmar-plantar erythrodysaesthesia syndrome [Not Recovered/Not Resolved]
  - Overdose [Unknown]

NARRATIVE: CASE EVENT DATE: 20200429
